FAERS Safety Report 11968694 (Version 1)
Quarter: 2016Q1

REPORT INFORMATION
  Report Type: Spontaneous
  Country: US (occurrence: US)
  Receive Date: 20160128
  Receipt Date: 20160128
  Transmission Date: 20160526
  Serious: No
  Sender: FDA-Public Use
  Company Number: US-ZYDUS-008468

PATIENT
  Age: 70 Year
  Sex: Female
  Weight: 183 kg

DRUGS (1)
  1. RIBAVIRIN. [Suspect]
     Active Substance: RIBAVIRIN
     Indication: HEPATITIS C
     Route: 048
     Dates: start: 20150212

REACTIONS (8)
  - Weight increased [Unknown]
  - Alopecia [Unknown]
  - Dyspepsia [Unknown]
  - Dysgeusia [Unknown]
  - Pruritus [Unknown]
  - Dyspnoea [Recovered/Resolved with Sequelae]
  - Anxiety [Recovered/Resolved]
  - Nausea [Unknown]

NARRATIVE: CASE EVENT DATE: 201502
